FAERS Safety Report 11054867 (Version 1)
Quarter: 2015Q2

REPORT INFORMATION
  Report Type: Spontaneous
  Country: US (occurrence: None)
  Receive Date: 20150420
  Receipt Date: 20150420
  Transmission Date: 20150821
  Serious: Yes (Other)
  Sender: FDA-Public Use
  Company Number: ADE15-031

PATIENT
  Age: 78 Year
  Sex: Female
  Weight: 55 kg

DRUGS (1)
  1. HEPARIN SODIUM INJECTION, MDV, 10ML, 1,000UNITS/ML, 25X SAGENT [Suspect]
     Active Substance: HEPARIN SODIUM
     Indication: MITRAL VALVE REPAIR
     Route: 042
     Dates: start: 20150331, end: 20150331

REACTIONS (3)
  - Thrombosis in device [None]
  - Drug effect decreased [None]
  - Pump reservoir issue [None]

NARRATIVE: CASE EVENT DATE: 20150331
